FAERS Safety Report 12132384 (Version 1)
Quarter: 2016Q1

REPORT INFORMATION
  Report Type: Spontaneous
  Country: US (occurrence: None)
  Receive Date: 20160229
  Receipt Date: 20160229
  Transmission Date: 20160526
  Serious: Yes (Death)
  Sender: FDA-Public Use
  Company Number: None

PATIENT
  Age: 67 Year
  Sex: Male
  Weight: 90.72 kg

DRUGS (9)
  1. AZITHROMYCIN 250MH VIVIMED LABES (ALATHAI PROTIMATE LT D [Suspect]
     Active Substance: AZITHROMYCIN ANHYDROUS
     Indication: PNEUMONIA
     Route: 048
     Dates: start: 20160216, end: 20160216
  2. PHOSPHA [Concomitant]
  3. SRING VALLEYY VITAMIN  E [Concomitant]
  4. SPRING VALLEY VITAMIN D [Concomitant]
  5. METOPROLOL. [Concomitant]
     Active Substance: METOPROLOL
  6. MELOXICAM. [Concomitant]
     Active Substance: MELOXICAM
  7. OMEPRAZOLE. [Concomitant]
     Active Substance: OMEPRAZOLE
  8. EQUATE ASPIRIN [Concomitant]
     Active Substance: ASPIRIN
  9. EQUATE MULTIVITAMIN [Concomitant]

REACTIONS (1)
  - Cardiac disorder [None]
